FAERS Safety Report 5721180-1 (Version None)
Quarter: 2008Q2

REPORT INFORMATION
  Report Type: 
  Country: None (occurrence: None)
  Receive Date: 20080429
  Receipt Date: 20080425
  Transmission Date: 20081010
  Serious: Yes (Hospitalization)
  Sender: FDA-Public Use
  Company Number: B0518518A

PATIENT
  Age: 27 Year
  Sex: Male

DRUGS (2)
  1. AUGMENTIN '125' [Suspect]
     Route: 065
  2. PARALEN [Concomitant]

REACTIONS (3)
  - JAUNDICE [None]
  - PRURITUS [None]
  - RASH [None]
